FAERS Safety Report 10142284 (Version 4)
Quarter: 2014Q2

REPORT INFORMATION
  Report Type: Spontaneous
  Country: US (occurrence: US)
  Receive Date: 20140429
  Receipt Date: 20140526
  Transmission Date: 20141212
  Serious: Yes (Other)
  Sender: FDA-Public Use
  Company Number: US-UCBSA-109359

PATIENT
  Age: 47 Year
  Sex: Female
  Weight: 69.39 kg

DRUGS (10)
  1. CIMZIA [Suspect]
     Indication: RHEUMATOID ARTHRITIS
     Dates: end: 201404
  2. MTX [Concomitant]
     Indication: RHEUMATOID ARTHRITIS
  3. ACYCLOVIR [Concomitant]
     Indication: HERPES VIRUS INFECTION
     Dosage: 1 TABLET
  4. MVI [Concomitant]
     Dosage: DAILY
  5. CALCIUM SUPPLEMENT [Concomitant]
     Indication: OSTEOPENIA
     Dosage: DAILY
  6. FOLIC ACID [Concomitant]
     Dosage: DAILY
  7. COD LIVER OIL [Concomitant]
     Dosage: DAILY
  8. AMITRIPTYLINE [Concomitant]
     Indication: INSOMNIA
  9. TRAMADOL [Concomitant]
     Indication: BACK PAIN
     Dosage: 2 TABLETS
  10. GABAPENTIN [Concomitant]
     Indication: FIBROMYALGIA

REACTIONS (11)
  - Joint injury [Unknown]
  - Withdrawal syndrome [Recovered/Resolved]
  - Rheumatoid arthritis [Unknown]
  - Feeling abnormal [Not Recovered/Not Resolved]
  - Malaise [Unknown]
  - Weight decreased [Unknown]
  - Pain [Recovered/Resolved]
  - Nausea [Recovered/Resolved]
  - Headache [Recovered/Resolved]
  - Decreased appetite [Recovered/Resolved]
  - Drug dose omission [Unknown]
